FAERS Safety Report 5746964-5 (Version None)
Quarter: 2008Q2

REPORT INFORMATION
  Report Type: 
  Country: None (occurrence: None)
  Receive Date: 20080522
  Receipt Date: 20080514
  Transmission Date: 20081010
  Serious: Yes (Hospitalization)
  Sender: FDA-Public Use
  Company Number: JP-ABBOTT-07P-087-0360102-00

PATIENT
  Sex: Male

DRUGS (26)
  1. KALETRA [Suspect]
     Indication: HIV INFECTION
     Route: 048
     Dates: start: 20050613, end: 20061126
  2. KALETRA [Suspect]
     Indication: HIV INFECTION
     Route: 048
     Dates: start: 20061127
  3. GANCICLOVIR [Suspect]
     Indication: OESOPHAGEAL ULCER
     Route: 042
     Dates: start: 20050601, end: 20050622
  4. GANCICLOVIR [Suspect]
     Indication: CYTOMEGALOVIRUS INFECTION
  5. GANCICLOVIR [Suspect]
     Indication: GASTRIC ULCER
  6. VALGANCICLOVIR HCL [Suspect]
     Indication: CYTOMEGALOVIRUS INFECTION
     Route: 048
     Dates: start: 20050530, end: 20050531
  7. VALGANCICLOVIR HCL [Suspect]
     Indication: GASTRIC ULCER
     Route: 048
     Dates: start: 20050623, end: 20050707
  8. VALGANCICLOVIR HCL [Suspect]
     Indication: OESOPHAGEAL ULCER
     Route: 048
     Dates: start: 20050623, end: 20050707
  9. STAVUDINE [Suspect]
     Indication: HIV INFECTION
     Route: 048
     Dates: start: 20050613, end: 20060518
  10. LAMIVUDINE [Concomitant]
     Indication: HIV INFECTION
     Route: 048
     Dates: start: 20050613, end: 20061126
  11. AZITHROMYCIN [Concomitant]
     Indication: OPPORTUNISTIC INFECTION PROPHYLAXIS
     Route: 048
     Dates: start: 20050418, end: 20060123
  12. BACTRIM [Concomitant]
     Indication: ANTIFUNGAL PROPHYLAXIS
     Route: 048
     Dates: start: 20050325, end: 20060523
  13. TEMOCAPRIL HYDROCHLORIDE [Concomitant]
     Indication: HYPERTENSION
     Route: 048
  14. ACETYLSALICYLIC ACID SRT [Concomitant]
     Indication: CEREBRAL INFARCTION
     Route: 048
  15. RABEPRAZOLE SODIUM [Concomitant]
     Indication: OESOPHAGEAL ULCER
     Route: 048
     Dates: end: 20060507
  16. RABEPRAZOLE SODIUM [Concomitant]
     Indication: GASTRIC ULCER
  17. SUCRALFATE HYDRATE [Concomitant]
     Indication: OESOPHAGEAL ULCER
     Route: 048
     Dates: end: 20060507
  18. SUCRALFATE HYDRATE [Concomitant]
     Indication: GASTRIC ULCER
  19. ALUDROX [Concomitant]
     Indication: OESOPHAGEAL ULCER
     Route: 048
  20. ALUDROX [Concomitant]
     Indication: GASTRIC ULCER
  21. ETIZOLAM [Concomitant]
     Indication: INSOMNIA
     Route: 048
  22. ONDANSETRON [Concomitant]
     Indication: PROPHYLAXIS OF NAUSEA AND VOMITING
     Route: 042
     Dates: start: 20050723, end: 20050901
  23. TENOFOVIR [Concomitant]
     Indication: HIV INFECTION
     Route: 048
     Dates: start: 20060519, end: 20061126
  24. EMTRICITABINE W/TENOFOVIR [Concomitant]
     Indication: HIV INFECTION
     Route: 048
     Dates: start: 20061127
  25. MAGNESIUM OXIDE [Concomitant]
     Indication: REFLUX OESOPHAGITIS
     Route: 048
     Dates: start: 20070423, end: 20070617
  26. MAGNESIUM OXIDE [Concomitant]
     Indication: PROPHYLAXIS

REACTIONS (7)
  - HYPERLACTACIDAEMIA [None]
  - HYPERTRIGLYCERIDAEMIA [None]
  - IMMUNE RECONSTITUTION SYNDROME [None]
  - KAPOSI'S SARCOMA [None]
  - REFLUX OESOPHAGITIS [None]
  - STOMACH DISCOMFORT [None]
  - WHITE BLOOD CELL COUNT DECREASED [None]
